FAERS Safety Report 6857581-8 (Version None)
Quarter: 2010Q3

REPORT INFORMATION
  Report Type: 
  Country: None (occurrence: None)
  Receive Date: 20100719
  Receipt Date: 20080126
  Transmission Date: 20110219
  Serious: No
  Sender: FDA-Public Use
  Company Number: US-PFIZER INC-2008008887

PATIENT
  Sex: Female
  Weight: 125.2 kg

DRUGS (5)
  1. CHANTIX [Suspect]
     Indication: SMOKING CESSATION THERAPY
     Route: 048
     Dates: start: 20080119
  2. METFORMIN [Concomitant]
     Indication: DIABETES MELLITUS
  3. VALSARTAN [Concomitant]
     Indication: HYPERTENSION
  4. MOTRIN IB [Concomitant]
  5. TYLENOL [Concomitant]

REACTIONS (2)
  - PAIN IN JAW [None]
  - TOOTHACHE [None]
